FAERS Safety Report 8112812-1 (Version None)
Quarter: 2012Q1

REPORT INFORMATION
  Report Type: 
  Country: None (occurrence: None)
  Receive Date: 20120203
  Receipt Date: 20120127
  Transmission Date: 20120608
  Serious: Yes (Other)
  Sender: FDA-Public Use
  Company Number: US-JNJFOC-20120200727

PATIENT
  Age: 47 Year
  Sex: Female

DRUGS (1)
  1. NUCYNTA ER [Suspect]
     Indication: ABDOMINAL PAIN
     Dosage: TWICE A DAY
     Route: 048
     Dates: start: 20120101, end: 20120101

REACTIONS (4)
  - DRUG INEFFECTIVE [None]
  - DEPRESSION [None]
  - DIZZINESS [None]
  - HEADACHE [None]
